FAERS Safety Report 12985793 (Version 2)
Quarter: 2017Q1

REPORT INFORMATION
  Report Type: Spontaneous
  Country: US (occurrence: US)
  Receive Date: 20161130
  Receipt Date: 20170224
  Transmission Date: 20170428
  Serious: No
  Sender: FDA-Public Use
  Company Number: US-009507513-1611USA003687

PATIENT
  Age: 75 Year
  Sex: Female
  Weight: 102.49 kg

DRUGS (1)
  1. FOSAMAX [Suspect]
     Active Substance: ALENDRONATE SODIUM
     Indication: OSTEOARTHRITIS
     Dosage: 70 MG, QW
     Route: 048
     Dates: start: 20110331, end: 20121004

REACTIONS (3)
  - Drug administration error [Unknown]
  - Arthralgia [Recovered/Resolved]
  - Myalgia [Recovered/Resolved]

NARRATIVE: CASE EVENT DATE: 20121004
